FAERS Safety Report 15265994 (Version 1)
Quarter: 2018Q3

REPORT INFORMATION
  Report Type: Spontaneous
  Country: US (occurrence: US)
  Receive Date: 20180810
  Receipt Date: 20180810
  Transmission Date: 20181010
  Serious: Yes (Other)
  Sender: FDA-Public Use
  Company Number: US-GLAXOSMITHKLINE-US2018140208

PATIENT
  Sex: Male

DRUGS (1)
  1. LAMICTAL XR [Suspect]
     Active Substance: LAMOTRIGINE
     Indication: EPILEPSY
     Dosage: 300 MG, BID
     Route: 048

REACTIONS (2)
  - Retinal pigment epitheliopathy [Not Recovered/Not Resolved]
  - Macular pigmentation [Not Recovered/Not Resolved]

NARRATIVE: CASE EVENT DATE: 2014
